FAERS Safety Report 26185744 (Version 1)
Quarter: 2025Q4

REPORT INFORMATION
  Report Type: Spontaneous
  Country: US (occurrence: None)
  Receive Date: 20251219
  Receipt Date: 20251219
  Transmission Date: 20260117
  Serious: Yes (Hospitalization)
  Sender: FDA-CTU
  Company Number: None

PATIENT
  Age: 52 Year
  Sex: Female

DRUGS (1)
  1. PALSONIFY [Suspect]
     Active Substance: PALTUSOTINE HYDROCHLORIDE
     Indication: Acromegaly
     Dosage: FREQUENCY : DAILY;
     Route: 048
     Dates: start: 20251031

REACTIONS (1)
  - Compartment syndrome [None]

NARRATIVE: CASE EVENT DATE: 20251126
